FAERS Safety Report 20248433 (Version 1)
Quarter: 2021Q4

REPORT INFORMATION
  Report Type: Spontaneous
  Country: US (occurrence: US)
  Receive Date: 20211229
  Receipt Date: 20211229
  Transmission Date: 20220303
  Serious: No
  Sender: FDA-Public Use
  Company Number: US-PFIZER INC-202101549238

PATIENT
  Age: 72 Year
  Sex: Female
  Weight: 52.16 kg

DRUGS (2)
  1. HYDROCORTISONE [Suspect]
     Active Substance: HYDROCORTISONE
     Dosage: UNK
  2. HYDROCORTISONE [Suspect]
     Active Substance: HYDROCORTISONE
     Dosage: 3 MG

REACTIONS (7)
  - Drug ineffective [Unknown]
  - Illness [Unknown]
  - Taste disorder [Unknown]
  - Feeding disorder [Unknown]
  - Constipation [Unknown]
  - Weight increased [Unknown]
  - Flatulence [Unknown]
